FAERS Safety Report 4866122-6 (Version None)
Quarter: 2005Q4

REPORT INFORMATION
  Report Type: 
  Country: None (occurrence: None)
  Receive Date: 20051227
  Receipt Date: 20051222
  Transmission Date: 20060501
  Serious: Yes (Death, Hospitalization)
  Sender: FDA-Public Use
  Company Number: FR-AVENTIS-200514295FR

PATIENT
  Age: 83 Year
  Sex: Male

DRUGS (6)
  1. BIPROFENID [Suspect]
     Indication: ARTHRITIS BACTERIAL
     Route: 048
     Dates: start: 20051104, end: 20051115
  2. LOVENOX [Suspect]
     Indication: ARTHRITIS BACTERIAL
     Route: 058
     Dates: start: 20051104, end: 20051115
  3. PYOSTACINE [Concomitant]
     Indication: ARTHRITIS BACTERIAL
     Route: 048
     Dates: start: 20051104, end: 20051115
  4. MOGADON [Concomitant]
     Route: 048
     Dates: end: 20051115
  5. INIPOMP [Concomitant]
     Route: 048
     Dates: end: 20051115
  6. EFFERALGAN [Concomitant]
     Indication: ARTHRITIS BACTERIAL
     Route: 048
     Dates: start: 20051104, end: 20051115

REACTIONS (6)
  - BRAIN HERNIATION [None]
  - HAEMATOMA [None]
  - HYPERTENSION [None]
  - LOSS OF CONSCIOUSNESS [None]
  - MYDRIASIS [None]
  - SUBDURAL HAEMATOMA [None]
